FAERS Safety Report 5853968-0 (Version None)
Quarter: 2008Q3

REPORT INFORMATION
  Report Type: 
  Country: None (occurrence: None)
  Receive Date: 20080822
  Receipt Date: 20080814
  Transmission Date: 20090109
  Serious: Yes (Other)
  Sender: FDA-Public Use
  Company Number: US-JNJFOC-20080803559

PATIENT
  Sex: Female
  Weight: 95.26 kg

DRUGS (1)
  1. ORTHO EVRA [Suspect]
     Indication: CONTRACEPTION
     Route: 062

REACTIONS (6)
  - DRUG EXPOSURE DURING PREGNANCY [None]
  - GESTATIONAL DIABETES [None]
  - MENORRHAGIA [None]
  - MENSTRUAL DISORDER [None]
  - PREGNANCY WITH CONTRACEPTIVE PATCH [None]
  - UTERINE ENLARGEMENT [None]
